FAERS Safety Report 7711023-9 (Version None)
Quarter: 2011Q3

REPORT INFORMATION
  Report Type: 
  Country: None (occurrence: None)
  Receive Date: 20110825
  Receipt Date: 20110812
  Transmission Date: 20111222
  Serious: Yes (Death)
  Sender: FDA-Public Use
  Company Number: US-MYLANLABS-2011S1017235

PATIENT
  Age: 43 Year
  Sex: Female

DRUGS (2)
  1. FLUOROURACIL [Suspect]
     Indication: NEOPLASM MALIGNANT
     Dosage: 4000 MG/M2 AS CONTINUOUS INFUSION (AMBULATORY INFUSION PUMP) OVER 4 HOURS
     Route: 041
  2. PLATINOL-AQ [Suspect]
     Indication: NEOPLASM MALIGNANT
     Route: 042

REACTIONS (6)
  - MULTI-ORGAN FAILURE [None]
  - HAEMODYNAMIC INSTABILITY [None]
  - TOXICITY TO VARIOUS AGENTS [None]
  - PANCYTOPENIA [None]
  - MUCOSAL INFLAMMATION [None]
  - MEDICATION ERROR [None]
